FAERS Safety Report 15534273 (Version 1)
Quarter: 2018Q4

REPORT INFORMATION
  Report Type: Spontaneous
  Country: IT (occurrence: IT)
  Receive Date: 20181021
  Receipt Date: 20181021
  Transmission Date: 20190205
  Serious: Yes (Other)
  Sender: FDA-Public Use
  Company Number: PHHY2018IT130275

PATIENT
  Age: 11 Year
  Sex: Male

DRUGS (2)
  1. FUCIDIN (FUSIDIC ACID) [Suspect]
     Active Substance: FUSIDIC ACID
     Indication: INFECTION PROPHYLAXIS
     Dosage: 1 DF, QD
     Route: 061
     Dates: start: 20180601
  2. AMOXICILLINA E ACIDO CLAVULANICO SANDOZ [Suspect]
     Active Substance: AMOXICILLIN\CLAVULANATE POTASSIUM
     Indication: IMPETIGO
     Dosage: 2 G, QD
     Route: 048
     Dates: start: 20180601, end: 20180703

REACTIONS (3)
  - Injury [Recovering/Resolving]
  - Pruritus [Recovering/Resolving]
  - Urticaria [Recovering/Resolving]

NARRATIVE: CASE EVENT DATE: 20180602
